FAERS Safety Report 9945073 (Version 1)
Quarter: 2014Q1

REPORT INFORMATION
  Report Type: Report from Study
  Country: US (occurrence: US)
  Receive Date: 20140303
  Receipt Date: 20140303
  Transmission Date: 20141002
  Serious: No
  Sender: FDA-Public Use
  Company Number: US-ABBVIE-13P-163-1055092-00

PATIENT
  Age: 63 Year
  Sex: Female

DRUGS (5)
  1. HUMIRA [Suspect]
     Indication: PSORIASIS
     Dates: start: 201301
  2. PROTONIX [Concomitant]
     Indication: PRODUCT USED FOR UNKNOWN INDICATION
  3. STOOL SOFTNER [Concomitant]
     Indication: PRODUCT USED FOR UNKNOWN INDICATION
  4. NAPROXIN [Concomitant]
     Indication: PAIN
  5. TRIAMTERENE [Concomitant]
     Indication: PRODUCT USED FOR UNKNOWN INDICATION
     Dosage: 37.5MG DAILY

REACTIONS (3)
  - Injection site pain [Recovering/Resolving]
  - Injection site erythema [Recovering/Resolving]
  - Injection site pain [Recovering/Resolving]
